FAERS Safety Report 16252797 (Version 2)
Quarter: 2019Q2

REPORT INFORMATION
  Report Type: Spontaneous
  Country: FR (occurrence: FR)
  Receive Date: 20190429
  Receipt Date: 20190501
  Transmission Date: 20190711
  Serious: Yes (Other)
  Sender: FDA-Public Use
  Company Number: FR-PFIZER INC-2019176020

PATIENT
  Age: 2 Year
  Sex: Male
  Weight: 11 kg

DRUGS (5)
  1. DOXORUBICIN HCL [Suspect]
     Active Substance: DOXORUBICIN HYDROCHLORIDE
     Indication: NEUROBLASTOMA
     Dosage: UNK
     Route: 041
     Dates: start: 20121214, end: 20130402
  2. CISPLATIN. [Suspect]
     Active Substance: CISPLATIN
     Indication: NEUROBLASTOMA
     Dosage: UNK
     Route: 041
     Dates: start: 20130124, end: 20130310
  3. VINCRISTINE SULFATE. [Suspect]
     Active Substance: VINCRISTINE SULFATE
     Indication: NEUROBLASTOMA
     Dosage: UNK
     Route: 041
     Dates: start: 20121214, end: 20130402
  4. ETOPOSIDE. [Suspect]
     Active Substance: ETOPOSIDE
     Indication: NEUROBLASTOMA
     Dosage: UNK
     Route: 041
     Dates: start: 20130124, end: 20130309
  5. CYCLOPHOSPHAMIDE. [Suspect]
     Active Substance: CYCLOPHOSPHAMIDE
     Indication: NEUROBLASTOMA
     Dosage: UNK
     Route: 041
     Dates: start: 20121214, end: 20130215

REACTIONS (1)
  - Decreased vibratory sense [Recovered/Resolved]

NARRATIVE: CASE EVENT DATE: 20130215
